FAERS Safety Report 7633163-5 (Version None)
Quarter: 2011Q3

REPORT INFORMATION
  Report Type: 
  Country: None (occurrence: None)
  Receive Date: 20110725
  Receipt Date: 20110718
  Transmission Date: 20111222
  Serious: Yes (Other)
  Sender: FDA-Public Use
  Company Number: US-SANOFI-AVENTIS-2011SA046217

PATIENT
  Sex: Female

DRUGS (5)
  1. LANTUS [Suspect]
     Dosage: DOSE:26 UNIT(S)
     Route: 058
     Dates: start: 20020101
  2. HUMALOG [Concomitant]
  3. SOLOSTAR [Suspect]
     Dates: start: 20020101
  4. ANALGESICS [Concomitant]
  5. ANTIHYPERTENSIVES [Concomitant]

REACTIONS (7)
  - HYPOGLYCAEMIA [None]
  - TREMOR [None]
  - BLOOD GLUCOSE INCREASED [None]
  - DIZZINESS [None]
  - PRODUCT QUALITY ISSUE [None]
  - EYE DISORDER [None]
  - HYPOGLYCAEMIC SEIZURE [None]
